FAERS Safety Report 4341570-1 (Version None)
Quarter: 2004Q2

REPORT INFORMATION
  Report Type: 
  Country: None (occurrence: None)
  Receive Date: 20040415
  Receipt Date: 20040406
  Transmission Date: 20050107
  Serious: Yes (Hospitalization)
  Sender: FDA-Public Use
  Company Number: 2004UW06869

PATIENT
  Age: 85 Year
  Sex: Male

DRUGS (11)
  1. LOSEC [Suspect]
     Dosage: 20 MG DAILY PO
     Route: 048
     Dates: start: 20030711, end: 20030716
  2. MONOPRIL [Concomitant]
  3. ADALAT [Concomitant]
  4. ASPIRIN [Concomitant]
  5. FUROSEMIDE [Concomitant]
  6. MONOCOR [Concomitant]
  7. FERROUS SULFATE TAB [Concomitant]
  8. SYNTHROID [Concomitant]
  9. ARANESP [Concomitant]
  10. CALCIUM [Concomitant]
  11. HYTRIN [Concomitant]

REACTIONS (2)
  - CONDITION AGGRAVATED [None]
  - THROMBOCYTOPENIA [None]
